FAERS Safety Report 19947466 (Version 1)
Quarter: 2021Q4

REPORT INFORMATION
  Report Type: Spontaneous
  Country: JP (occurrence: JP)
  Receive Date: 20211012
  Receipt Date: 20211012
  Transmission Date: 20220303
  Serious: Yes (Hospitalization)
  Sender: FDA-Public Use
  Company Number: JP-MSD-2110JPN000555J

PATIENT
  Age: 79 Year
  Sex: Male
  Weight: 70 kg

DRUGS (6)
  1. KEYTRUDA [Suspect]
     Active Substance: PEMBROLIZUMAB
     Indication: Bladder cancer
     Dosage: 200 MILLIGRAM, ONCE
     Route: 041
     Dates: start: 20210310, end: 20210608
  2. AMLODIPINE BESYLATE [Concomitant]
     Active Substance: AMLODIPINE BESYLATE
     Dosage: 2.5 MILLIGRAM
     Route: 048
     Dates: start: 20190430
  3. TRAVATAN Z [Concomitant]
     Active Substance: TRAVOPROST
     Dosage: UNK
     Route: 031
     Dates: start: 20190521
  4. IRBESARTAN OD [Concomitant]
     Dosage: 100 MILLIGRAM
     Route: 048
     Dates: start: 20190903
  5. MAGNESIUM OXIDE [Concomitant]
     Active Substance: MAGNESIUM OXIDE
     Dosage: 330 MILLIGRAM
     Route: 048
     Dates: start: 20210330
  6. CALONAL [Concomitant]
     Active Substance: ACETAMINOPHEN
     Dosage: 300
     Route: 048
     Dates: start: 20201123

REACTIONS (1)
  - Hepatic function abnormal [Recovering/Resolving]

NARRATIVE: CASE EVENT DATE: 20210720
